FAERS Safety Report 4689039-9 (Version None)
Quarter: 2005Q2

REPORT INFORMATION
  Report Type: 
  Country: None (occurrence: None)
  Receive Date: 20050608
  Receipt Date: 20050131
  Transmission Date: 20051028
  Serious: No
  Sender: FDA-Public Use
  Company Number: 2004-BP-13160BP

PATIENT
  Age: 71 Year
  Sex: Male
  Weight: 79.8 kg

DRUGS (6)
  1. SPIRIVA [Suspect]
     Dosage: (18 MCG), IH
     Route: 055
     Dates: start: 20040901, end: 20041120
  2. COMBIVENT (COMBIVENT /GFR/) [Concomitant]
  3. FLOMAX [Concomitant]
  4. LISINOPRIL [Concomitant]
  5. LEVOXYL [Concomitant]
  6. ALBUTEROL [Concomitant]

REACTIONS (1)
  - RASH [None]
